FAERS Safety Report 6584847-1 (Version None)
Quarter: 2010Q1

REPORT INFORMATION
  Report Type: 
  Country: None (occurrence: None)
  Receive Date: 20100217
  Receipt Date: 20100208
  Transmission Date: 20100710
  Serious: Yes (Other)
  Sender: FDA-Public Use
  Company Number: US-ASTRAZENECA-2010SE05718

PATIENT
  Age: 81 Year
  Sex: Female

DRUGS (6)
  1. NEXIUM [Suspect]
     Indication: GASTROOESOPHAGEAL REFLUX DISEASE
     Route: 048
     Dates: start: 20050101
  2. PLAVIX [Interacting]
     Indication: PERIPHERAL ARTERIAL OCCLUSIVE DISEASE
     Route: 048
     Dates: start: 20091001
  3. CRESTOR [Concomitant]
     Route: 048
  4. ASPIRIN [Concomitant]
  5. MICARDIS [Concomitant]
  6. VITAMINS [Concomitant]

REACTIONS (3)
  - ARTERIAL OCCLUSIVE DISEASE [None]
  - DRUG INTERACTION [None]
  - PAIN IN EXTREMITY [None]
